FAERS Safety Report 9027744 (Version 4)
Quarter: 2013Q1

REPORT INFORMATION
  Report Type: Report from Study
  Country: CZ (occurrence: CZ)
  Receive Date: 20130123
  Receipt Date: 20130220
  Transmission Date: 20140127
  Serious: Yes (Hospitalization)
  Sender: FDA-Public Use
  Company Number: CZ-JNJFOC-20130111048

PATIENT
  Age: 66 Year
  Sex: Male
  Weight: 110 kg

DRUGS (3)
  1. INFLIXIMAB, RECOMBINANT [Suspect]
     Indication: PSORIASIS
     Route: 042
     Dates: start: 20130114
  2. INFLIXIMAB, RECOMBINANT [Suspect]
     Indication: PSORIASIS
     Route: 042
     Dates: start: 200910
  3. ALL OTHER MEDICATIONS [Concomitant]
     Dosage: PERIADMINISTRATION MEDICATIONS

REACTIONS (2)
  - Non-cardiac chest pain [Recovered/Resolved]
  - Infusion related reaction [Recovered/Resolved]
